FAERS Safety Report 5990195-0 (Version None)
Quarter: 2008Q4

REPORT INFORMATION
  Report Type: 
  Country: None (occurrence: None)
  Receive Date: 20081209
  Receipt Date: 20081126
  Transmission Date: 20090506
  Serious: No
  Sender: FDA-Public Use
  Company Number: 005011

PATIENT
  Sex: Male

DRUGS (1)
  1. PLETAL [Suspect]
     Route: 048

REACTIONS (1)
  - EPILEPSY [None]
